FAERS Safety Report 8558495-8 (Version None)
Quarter: 2012Q3

REPORT INFORMATION
  Report Type: 
  Country: None (occurrence: None)
  Receive Date: 20120801
  Receipt Date: 20120723
  Transmission Date: 20120928
  Serious: Yes (Hospitalization)
  Sender: FDA-Public Use
  Company Number: US-ELI_LILLY_AND_COMPANY-US201110004083

PATIENT
  Age: 39 Year
  Sex: Female
  Weight: 70.748 kg

DRUGS (18)
  1. CELLCEPT [Concomitant]
     Indication: PRODUCT USED FOR UNKNOWN INDICATION
     Dosage: 500 MG, UNK
     Route: 048
  2. LEXAPRO [Concomitant]
     Indication: PRODUCT USED FOR UNKNOWN INDICATION
     Dosage: 20 MG, QD
     Route: 048
  3. ZOFRAN [Concomitant]
     Indication: PRODUCT USED FOR UNKNOWN INDICATION
     Route: 048
  4. MEXILETINE HYDROCHLORIDE [Concomitant]
     Indication: PRODUCT USED FOR UNKNOWN INDICATION
     Dosage: 150 MG, UNK
     Route: 048
  5. CREON [Concomitant]
     Indication: PANCREATIC INSUFFICIENCY
     Route: 048
  6. D.H.E. 45 [Concomitant]
     Indication: MIGRAINE
  7. KLONOPIN [Concomitant]
     Indication: PRODUCT USED FOR UNKNOWN INDICATION
     Dosage: 0.5 MG, BID
     Route: 048
  8. BOTOX [Concomitant]
     Indication: MIGRAINE
     Dosage: UNK, OTHER
  9. NORTRIPTYLINE HCL [Concomitant]
     Indication: PRODUCT USED FOR UNKNOWN INDICATION
     Dosage: 50 MG, UNK
     Route: 048
  10. FORTEO [Suspect]
     Dosage: 20 UG, QD
  11. PREDNISONE [Concomitant]
     Indication: PRODUCT USED FOR UNKNOWN INDICATION
     Dosage: UNK, UNKNOWN
     Route: 048
  12. LUNESTA [Concomitant]
     Indication: PRODUCT USED FOR UNKNOWN INDICATION
     Dosage: 2 MG, EACH EVENING
  13. PEPCID [Concomitant]
     Indication: PRODUCT USED FOR UNKNOWN INDICATION
     Dosage: 20 MG, EACH EVENING
  14. VICODIN [Concomitant]
     Indication: PRODUCT USED FOR UNKNOWN INDICATION
     Dosage: UNK
     Route: 048
  15. FORTEO [Suspect]
     Indication: OSTEOPOROSIS
     Dosage: 20 UG, QD
     Dates: start: 20110101
  16. PREDNISONE [Concomitant]
     Dosage: UNK, UNKNOWN
     Dates: start: 20080101
  17. NEXIUM [Concomitant]
     Indication: PRODUCT USED FOR UNKNOWN INDICATION
     Dosage: 40 MG, BID
     Route: 048
  18. SOMA [Concomitant]
     Indication: PRODUCT USED FOR UNKNOWN INDICATION
     Dosage: 250 MG, TID
     Route: 048

REACTIONS (8)
  - ARTHRALGIA [None]
  - ENDOMETRIOSIS [None]
  - AMENORRHOEA [None]
  - SALPINGO-OOPHORECTOMY BILATERAL [None]
  - FEELING ABNORMAL [None]
  - PNEUMONIA [None]
  - HYSTERECTOMY [None]
  - FUNCTIONAL GASTROINTESTINAL DISORDER [None]
